FAERS Safety Report 4432653-6 (Version None)
Quarter: 2004Q3

REPORT INFORMATION
  Report Type: 
  Country: None (occurrence: None)
  Receive Date: 20040820
  Receipt Date: 20040810
  Transmission Date: 20050211
  Serious: Yes (Other)
  Sender: FDA-Public Use
  Company Number: 2004055467

PATIENT
  Sex: Female

DRUGS (1)
  1. FELDENE [Suspect]
     Indication: OSTEOARTHRITIS

REACTIONS (1)
  - RENAL DISORDER [None]
